FAERS Safety Report 20433463 (Version 26)
Quarter: 2025Q3

REPORT INFORMATION
  Report Type: Spontaneous
  Country: CA (occurrence: CA)
  Receive Date: 20220205
  Receipt Date: 20250913
  Transmission Date: 20251021
  Serious: Yes (Life-Threatening, Hospitalization, Disabling, Other)
  Sender: CELLTRION
  Company Number: CA-CELLTRION INC.-2020CA035188

PATIENT

DRUGS (530)
  1. RITUXIMAB [Suspect]
     Active Substance: RITUXIMAB
     Indication: Sjogren^s syndrome
     Route: 042
  2. RITUXIMAB [Suspect]
     Active Substance: RITUXIMAB
     Indication: Rheumatoid arthritis
     Route: 042
  3. RITUXIMAB [Suspect]
     Active Substance: RITUXIMAB
     Route: 042
  4. RITUXIMAB [Suspect]
     Active Substance: RITUXIMAB
     Route: 042
  5. RITUXIMAB [Suspect]
     Active Substance: RITUXIMAB
     Route: 042
  6. RITUXIMAB [Suspect]
     Active Substance: RITUXIMAB
     Route: 042
  7. RITUXIMAB [Suspect]
     Active Substance: RITUXIMAB
     Route: 042
  8. RITUXIMAB [Suspect]
     Active Substance: RITUXIMAB
     Route: 042
  9. RITUXIMAB [Suspect]
     Active Substance: RITUXIMAB
     Route: 042
  10. RITUXIMAB [Suspect]
     Active Substance: RITUXIMAB
     Route: 042
  11. RITUXIMAB [Suspect]
     Active Substance: RITUXIMAB
     Route: 042
  12. RITUXIMAB [Suspect]
     Active Substance: RITUXIMAB
     Route: 042
  13. RITUXIMAB [Suspect]
     Active Substance: RITUXIMAB
     Route: 042
  14. RITUXIMAB [Suspect]
     Active Substance: RITUXIMAB
     Route: 042
  15. RITUXIMAB [Suspect]
     Active Substance: RITUXIMAB
     Route: 065
  16. RITUXIMAB [Suspect]
     Active Substance: RITUXIMAB
  17. RITUXIMAB [Suspect]
     Active Substance: RITUXIMAB
     Route: 042
  18. RITUXIMAB [Suspect]
     Active Substance: RITUXIMAB
     Route: 040
  19. ACETAMINOPHEN [Suspect]
     Active Substance: ACETAMINOPHEN
     Indication: Arthritis
     Route: 048
  20. ACETAMINOPHEN [Suspect]
     Active Substance: ACETAMINOPHEN
  21. ACETAMINOPHEN [Suspect]
     Active Substance: ACETAMINOPHEN
     Indication: Arthritis
     Route: 048
  22. ACETAMINOPHEN [Suspect]
     Active Substance: ACETAMINOPHEN
  23. ACETAMINOPHEN [Suspect]
     Active Substance: ACETAMINOPHEN
  24. ACETAMINOPHEN [Suspect]
     Active Substance: ACETAMINOPHEN
  25. ASPIRIN [Suspect]
     Active Substance: ASPIRIN
     Indication: Product used for unknown indication
     Route: 065
  26. ASPIRIN [Suspect]
     Active Substance: ASPIRIN
     Route: 065
  27. ASPIRIN [Suspect]
     Active Substance: ASPIRIN
     Route: 048
  28. ASPIRIN [Suspect]
     Active Substance: ASPIRIN
     Route: 065
  29. ALISKIREN [Suspect]
     Active Substance: ALISKIREN
     Indication: Product used for unknown indication
  30. ALISKIREN [Suspect]
     Active Substance: ALISKIREN
     Route: 048
  31. ALISKIREN [Suspect]
     Active Substance: ALISKIREN
     Route: 048
  32. ALISKIREN [Suspect]
     Active Substance: ALISKIREN
     Route: 048
  33. ALISKIREN HEMIFUMARATE [Suspect]
     Active Substance: ALISKIREN HEMIFUMARATE
     Indication: Off label use
     Route: 065
  34. ALISKIREN HEMIFUMARATE [Suspect]
     Active Substance: ALISKIREN HEMIFUMARATE
     Indication: Microalbuminuria
     Route: 048
  35. ALISKIREN HEMIFUMARATE [Suspect]
     Active Substance: ALISKIREN HEMIFUMARATE
     Indication: Hypertension
     Route: 065
  36. ALISKIREN HEMIFUMARATE [Suspect]
     Active Substance: ALISKIREN HEMIFUMARATE
     Route: 048
  37. ALISKIREN HEMIFUMARATE [Suspect]
     Active Substance: ALISKIREN HEMIFUMARATE
     Route: 065
  38. ALISKIREN HEMIFUMARATE [Suspect]
     Active Substance: ALISKIREN HEMIFUMARATE
     Route: 065
  39. ALISKIREN HEMIFUMARATE [Suspect]
     Active Substance: ALISKIREN HEMIFUMARATE
     Route: 065
  40. ALISKIREN HEMIFUMARATE [Suspect]
     Active Substance: ALISKIREN HEMIFUMARATE
     Route: 065
  41. ALISKIREN HEMIFUMARATE [Suspect]
     Active Substance: ALISKIREN HEMIFUMARATE
     Route: 065
  42. ALISKIREN HEMIFUMARATE [Suspect]
     Active Substance: ALISKIREN HEMIFUMARATE
     Route: 065
  43. ALISKIREN HEMIFUMARATE [Suspect]
     Active Substance: ALISKIREN HEMIFUMARATE
     Route: 065
  44. ALISKIREN HEMIFUMARATE [Suspect]
     Active Substance: ALISKIREN HEMIFUMARATE
     Route: 048
  45. ALISKIREN HEMIFUMARATE [Suspect]
     Active Substance: ALISKIREN HEMIFUMARATE
     Route: 048
  46. ALISKIREN HEMIFUMARATE [Suspect]
     Active Substance: ALISKIREN HEMIFUMARATE
     Route: 065
  47. ALISKIREN HEMIFUMARATE [Suspect]
     Active Substance: ALISKIREN HEMIFUMARATE
     Route: 048
  48. ALISKIREN HEMIFUMARATE [Suspect]
     Active Substance: ALISKIREN HEMIFUMARATE
     Route: 048
  49. ALISKIREN HEMIFUMARATE [Suspect]
     Active Substance: ALISKIREN HEMIFUMARATE
     Route: 048
  50. ALISKIREN HEMIFUMARATE [Suspect]
     Active Substance: ALISKIREN HEMIFUMARATE
     Route: 048
  51. ALISKIREN HEMIFUMARATE [Suspect]
     Active Substance: ALISKIREN HEMIFUMARATE
     Route: 048
  52. ALISKIREN HEMIFUMARATE [Suspect]
     Active Substance: ALISKIREN HEMIFUMARATE
  53. ALISKIREN HEMIFUMARATE [Suspect]
     Active Substance: ALISKIREN HEMIFUMARATE
  54. ALISKIREN HEMIFUMARATE [Suspect]
     Active Substance: ALISKIREN HEMIFUMARATE
  55. ALISKIREN HEMIFUMARATE [Suspect]
     Active Substance: ALISKIREN HEMIFUMARATE
  56. ALISKIREN HEMIFUMARATE [Suspect]
     Active Substance: ALISKIREN HEMIFUMARATE
  57. ALISKIREN HEMIFUMARATE [Suspect]
     Active Substance: ALISKIREN HEMIFUMARATE
  58. ALISKIREN HEMIFUMARATE [Suspect]
     Active Substance: ALISKIREN HEMIFUMARATE
  59. ALTACE [Suspect]
     Active Substance: RAMIPRIL
     Indication: Microalbuminuria
     Route: 048
  60. ALTACE [Suspect]
     Active Substance: RAMIPRIL
     Route: 048
  61. ALTACE [Suspect]
     Active Substance: RAMIPRIL
     Route: 065
  62. ALTACE [Suspect]
     Active Substance: RAMIPRIL
  63. ALTACE [Suspect]
     Active Substance: RAMIPRIL
     Indication: Product used for unknown indication
     Route: 048
  64. ALTACE [Suspect]
     Active Substance: RAMIPRIL
     Route: 048
  65. AMLODIPINE [Suspect]
     Active Substance: AMLODIPINE BESYLATE
     Indication: Product used for unknown indication
     Route: 065
  66. AMLODIPINE [Suspect]
     Active Substance: AMLODIPINE BESYLATE
     Route: 048
  67. AMLODIPINE [Suspect]
     Active Substance: AMLODIPINE BESYLATE
     Route: 048
  68. AMLODIPINE [Suspect]
     Active Substance: AMLODIPINE BESYLATE
     Route: 048
  69. AMLODIPINE [Suspect]
     Active Substance: AMLODIPINE BESYLATE
     Route: 065
  70. AMLODIPINE [Suspect]
     Active Substance: AMLODIPINE BESYLATE
     Route: 065
  71. AMLODIPINE BESYLATE [Suspect]
     Active Substance: AMLODIPINE BESYLATE
     Indication: Product used for unknown indication
     Route: 065
  72. AMLODIPINE BESYLATE [Suspect]
     Active Substance: AMLODIPINE BESYLATE
     Route: 048
  73. AMLODIPINE BESYLATE [Suspect]
     Active Substance: AMLODIPINE BESYLATE
     Route: 048
  74. AMLODIPINE BESYLATE [Suspect]
     Active Substance: AMLODIPINE BESYLATE
     Route: 048
  75. AMLODIPINE BESYLATE [Suspect]
     Active Substance: AMLODIPINE BESYLATE
     Route: 048
  76. AMLODIPINE BESYLATE [Suspect]
     Active Substance: AMLODIPINE BESYLATE
  77. AMLODIPINE BESYLATE [Suspect]
     Active Substance: AMLODIPINE BESYLATE
  78. AMLODIPINE BESYLATE [Suspect]
     Active Substance: AMLODIPINE BESYLATE
     Indication: Product used for unknown indication
     Route: 065
  79. AMLODIPINE BESYLATE [Suspect]
     Active Substance: AMLODIPINE BESYLATE
     Route: 048
  80. AMLODIPINE BESYLATE [Suspect]
     Active Substance: AMLODIPINE BESYLATE
  81. AMLODIPINE BESYLATE [Suspect]
     Active Substance: AMLODIPINE BESYLATE
  82. AMLODIPINE BESYLATE [Suspect]
     Active Substance: AMLODIPINE BESYLATE
  83. AMLODIPINE BESYLATE [Suspect]
     Active Substance: AMLODIPINE BESYLATE
  84. AMLODIPINE BESYLATE [Suspect]
     Active Substance: AMLODIPINE BESYLATE
  85. AMLODIPINE BESYLATE [Suspect]
     Active Substance: AMLODIPINE BESYLATE
  86. AMLODIPINE BESYLATE [Suspect]
     Active Substance: AMLODIPINE BESYLATE
  87. AMLODIPINE BESYLATE [Suspect]
     Active Substance: AMLODIPINE BESYLATE
  88. AMLODIPINE BESYLATE [Suspect]
     Active Substance: AMLODIPINE BESYLATE
  89. AMLODIPINE BESYLATE [Suspect]
     Active Substance: AMLODIPINE BESYLATE
  90. AMLODIPINE BESYLATE [Suspect]
     Active Substance: AMLODIPINE BESYLATE
  91. AMLODIPINE BESYLATE [Suspect]
     Active Substance: AMLODIPINE BESYLATE
  92. AMLODIPINE BESYLATE [Suspect]
     Active Substance: AMLODIPINE BESYLATE
  93. ATACAND [Suspect]
     Active Substance: CANDESARTAN CILEXETIL
     Indication: Hypertension
     Route: 048
  94. ATACAND [Suspect]
     Active Substance: CANDESARTAN CILEXETIL
     Route: 048
  95. ATACAND [Suspect]
     Active Substance: CANDESARTAN CILEXETIL
  96. ATACAND [Suspect]
     Active Substance: CANDESARTAN CILEXETIL
     Indication: Hypertension
     Route: 048
  97. ATORVASTATIN CALCIUM [Suspect]
     Active Substance: ATORVASTATIN CALCIUM
     Indication: Product used for unknown indication
     Route: 065
  98. ASPIRIN [Suspect]
     Active Substance: ASPIRIN
     Indication: Product used for unknown indication
     Route: 048
  99. ASPIRIN [Suspect]
     Active Substance: ASPIRIN
     Indication: Product used for unknown indication
     Route: 065
  100. ASPIRIN [Suspect]
     Active Substance: ASPIRIN
  101. ASPIRIN [Suspect]
     Active Substance: ASPIRIN
     Route: 065
  102. BISOPROLOL [Suspect]
     Active Substance: BISOPROLOL
     Indication: Product used for unknown indication
     Route: 065
  103. BISOPROLOL [Suspect]
     Active Substance: BISOPROLOL
  104. BISOPROLOL [Suspect]
     Active Substance: BISOPROLOL
  105. BISOPROLOL [Suspect]
     Active Substance: BISOPROLOL
  106. BISOPROLOL [Suspect]
     Active Substance: BISOPROLOL
  107. BISOPROLOL [Suspect]
     Active Substance: BISOPROLOL
  108. BISOPROLOL [Suspect]
     Active Substance: BISOPROLOL
     Indication: Product used for unknown indication
     Route: 065
  109. BISOPROLOL [Suspect]
     Active Substance: BISOPROLOL
     Route: 065
  110. BISOPROLOL [Suspect]
     Active Substance: BISOPROLOL
     Route: 065
  111. BISOPROLOL [Suspect]
     Active Substance: BISOPROLOL
     Route: 065
  112. BISOPROLOL [Suspect]
     Active Substance: BISOPROLOL
     Route: 065
  113. BISOPROLOL [Suspect]
     Active Substance: BISOPROLOL
     Route: 065
  114. BISOPROLOL [Suspect]
     Active Substance: BISOPROLOL
     Route: 065
  115. BISOPROLOL [Suspect]
     Active Substance: BISOPROLOL
  116. BISOPROLOL FUMARATE [Suspect]
     Active Substance: BISOPROLOL FUMARATE
     Indication: Product used for unknown indication
     Route: 065
  117. CALCIUM CARBONATE [Suspect]
     Active Substance: CALCIUM CARBONATE
     Indication: Product used for unknown indication
     Route: 065
  118. CALCIUM CARBONATE [Suspect]
     Active Substance: CALCIUM CARBONATE
     Route: 048
  119. CALCIUM CARBONATE [Suspect]
     Active Substance: CALCIUM CARBONATE
     Route: 048
  120. CALCIUM CARBONATE [Suspect]
     Active Substance: CALCIUM CARBONATE
     Route: 065
  121. CALCIUM CARBONATE [Suspect]
     Active Substance: CALCIUM CARBONATE
     Indication: Product used for unknown indication
     Route: 065
  122. CALCIUM CARBONATE [Suspect]
     Active Substance: CALCIUM CARBONATE
     Route: 065
  123. CALCIUM CARBONATE [Suspect]
     Active Substance: CALCIUM CARBONATE
     Route: 048
  124. CALCIUM CARBONATE [Suspect]
     Active Substance: CALCIUM CARBONATE
     Route: 065
  125. CALCIUM CARBONATE [Suspect]
     Active Substance: CALCIUM CARBONATE
     Route: 065
  126. CALCIUM CARBONATE [Suspect]
     Active Substance: CALCIUM CARBONATE
     Route: 065
  127. CALCIUM CARBONATE [Suspect]
     Active Substance: CALCIUM CARBONATE
     Route: 048
  128. CALCIUM CARBONATE [Suspect]
     Active Substance: CALCIUM CARBONATE
     Route: 048
  129. CALCIUM CARBONATE [Suspect]
     Active Substance: CALCIUM CARBONATE
     Route: 048
  130. CALCIUM CARBONATE [Suspect]
     Active Substance: CALCIUM CARBONATE
  131. CALCIUM CARBONATE [Suspect]
     Active Substance: CALCIUM CARBONATE
     Route: 065
  132. CALCIUM CARBONATE [Suspect]
     Active Substance: CALCIUM CARBONATE
     Route: 065
  133. CALCIUM CARBONATE [Suspect]
     Active Substance: CALCIUM CARBONATE
     Route: 065
  134. CANDESARTAN [Suspect]
     Active Substance: CANDESARTAN
     Indication: Hypertension
     Route: 048
  135. CANDESARTAN [Suspect]
     Active Substance: CANDESARTAN
     Route: 048
  136. CANDESARTAN [Suspect]
     Active Substance: CANDESARTAN
     Route: 048
  137. CANDESARTAN [Suspect]
     Active Substance: CANDESARTAN
     Route: 048
  138. CANDESARTAN [Suspect]
     Active Substance: CANDESARTAN
     Indication: Hypertension
     Route: 048
  139. CANDESARTAN [Suspect]
     Active Substance: CANDESARTAN
     Route: 048
  140. CANDESARTAN [Suspect]
     Active Substance: CANDESARTAN
     Route: 048
  141. CANDESARTAN [Suspect]
     Active Substance: CANDESARTAN
     Route: 048
  142. CANDESARTAN CILEXETIL [Suspect]
     Active Substance: CANDESARTAN CILEXETIL
     Indication: Hypertension
     Route: 065
  143. CANDESARTAN CILEXETIL [Suspect]
     Active Substance: CANDESARTAN CILEXETIL
     Indication: Hypertension
     Route: 065
  144. CANDESARTAN CILEXETIL [Suspect]
     Active Substance: CANDESARTAN CILEXETIL
     Route: 048
  145. CANDESARTAN CILEXETIL [Suspect]
     Active Substance: CANDESARTAN CILEXETIL
     Route: 048
  146. CANDESARTAN CILEXETIL [Suspect]
     Active Substance: CANDESARTAN CILEXETIL
     Route: 048
  147. CANDESARTAN CILEXETIL [Suspect]
     Active Substance: CANDESARTAN CILEXETIL
     Route: 048
  148. CANDESARTAN CILEXETIL [Suspect]
     Active Substance: CANDESARTAN CILEXETIL
     Route: 048
  149. CANDESARTAN CILEXETIL [Suspect]
     Active Substance: CANDESARTAN CILEXETIL
  150. COSENTYX [Suspect]
     Active Substance: SECUKINUMAB
     Indication: Psoriatic arthropathy
     Dosage: 30 MILLIGRAM, 1/WEEK
     Route: 065
  151. COSENTYX [Suspect]
     Active Substance: SECUKINUMAB
     Indication: Psoriasis
     Dosage: 300 MILLIGRAM, 1 EVERY 1 MONTHS
     Route: 058
  152. COSENTYX [Suspect]
     Active Substance: SECUKINUMAB
     Indication: Hypertension
     Route: 058
  153. COSENTYX [Suspect]
     Active Substance: SECUKINUMAB
     Dosage: 30 MILLIGRAM, 1/WEEK
     Route: 065
  154. COSENTYX [Suspect]
     Active Substance: SECUKINUMAB
     Dosage: 30 MILLIGRAM, 1/WEEK
     Route: 065
  155. COSENTYX [Suspect]
     Active Substance: SECUKINUMAB
     Route: 058
  156. COSENTYX [Suspect]
     Active Substance: SECUKINUMAB
     Route: 058
  157. COSENTYX [Suspect]
     Active Substance: SECUKINUMAB
     Route: 065
  158. COSENTYX [Suspect]
     Active Substance: SECUKINUMAB
     Dosage: 42.857 MILLIGRAM, 1 EVERY 1 WEEK
     Route: 058
  159. COSENTYX [Suspect]
     Active Substance: SECUKINUMAB
     Route: 065
  160. COSENTYX [Suspect]
     Active Substance: SECUKINUMAB
  161. COSENTYX [Suspect]
     Active Substance: SECUKINUMAB
     Route: 058
  162. COSENTYX [Suspect]
     Active Substance: SECUKINUMAB
     Route: 058
  163. COSENTYX [Suspect]
     Active Substance: SECUKINUMAB
     Route: 058
  164. COSENTYX [Suspect]
     Active Substance: SECUKINUMAB
  165. COSENTYX [Suspect]
     Active Substance: SECUKINUMAB
  166. COSENTYX [Suspect]
     Active Substance: SECUKINUMAB
  167. COSENTYX [Suspect]
     Active Substance: SECUKINUMAB
  168. COSENTYX [Suspect]
     Active Substance: SECUKINUMAB
  169. COSENTYX [Suspect]
     Active Substance: SECUKINUMAB
  170. COSENTYX [Suspect]
     Active Substance: SECUKINUMAB
  171. COSENTYX [Suspect]
     Active Substance: SECUKINUMAB
     Dosage: 30 MILLIGRAM, 1 EVERY 1 MONTHS
     Route: 058
  172. COSENTYX [Suspect]
     Active Substance: SECUKINUMAB
     Dosage: 300 MILLIGRAM, 1 EVERY 1 MONTHS
     Route: 058
  173. COSENTYX [Suspect]
     Active Substance: SECUKINUMAB
     Dosage: 42.857 MILLIGRAM, 1 EVERY 1 WEEK
     Route: 058
  174. COSENTYX [Suspect]
     Active Substance: SECUKINUMAB
     Dosage: 42.857 MILLIGRAM, 1 EVERY 1 WEEK
     Route: 058
  175. COSENTYX [Suspect]
     Active Substance: SECUKINUMAB
  176. COSENTYX [Suspect]
     Active Substance: SECUKINUMAB
  177. COSENTYX [Suspect]
     Active Substance: SECUKINUMAB
     Route: 058
  178. COSENTYX [Suspect]
     Active Substance: SECUKINUMAB
     Route: 058
  179. COSENTYX [Suspect]
     Active Substance: SECUKINUMAB
     Route: 058
  180. COSENTYX [Suspect]
     Active Substance: SECUKINUMAB
     Dosage: 300 MILLIGRAM, 1 EVERY 1 MONTHS
     Route: 065
  181. COSENTYX [Suspect]
     Active Substance: SECUKINUMAB
     Dosage: 30 MILLIGRAM 1 EVERY 1 MONTHS
     Route: 065
  182. COSENTYX [Suspect]
     Active Substance: SECUKINUMAB
     Dosage: 300 MILLIGRAM, 1 EVERY 1 MONTHS
  183. COSENTYX [Suspect]
     Active Substance: SECUKINUMAB
     Dosage: 30 MILLIGRAM, 1 EVERY 1 WEEKS
     Route: 058
  184. COSENTYX [Suspect]
     Active Substance: SECUKINUMAB
  185. COSENTYX [Suspect]
     Active Substance: SECUKINUMAB
     Route: 058
  186. COSENTYX [Suspect]
     Active Substance: SECUKINUMAB
  187. COSENTYX [Suspect]
     Active Substance: SECUKINUMAB
  188. COSENTYX [Suspect]
     Active Substance: SECUKINUMAB
     Dosage: 30 MILLIGRAM, 1 EVERY 1 MONTHS
  189. COSENTYX [Suspect]
     Active Substance: SECUKINUMAB
     Dosage: 300 MILLIGRAM, 1 EVERY 1 MONTHS
  190. COSENTYX [Suspect]
     Active Substance: SECUKINUMAB
     Dosage: 30 MILLIGRAM, 1 EVERY 1 WEEKS
  191. COSENTYX [Suspect]
     Active Substance: SECUKINUMAB
  192. COSENTYX [Suspect]
     Active Substance: SECUKINUMAB
     Route: 065
  193. COSENTYX [Suspect]
     Active Substance: SECUKINUMAB
     Route: 065
  194. COSENTYX [Suspect]
     Active Substance: SECUKINUMAB
     Route: 065
  195. COSENTYX [Suspect]
     Active Substance: SECUKINUMAB
     Route: 065
  196. COSENTYX [Suspect]
     Active Substance: SECUKINUMAB
     Route: 065
  197. COSENTYX [Suspect]
     Active Substance: SECUKINUMAB
     Dosage: 300 MILLIGRAM, 1 EVERY 1 MONTHS
     Route: 065
  198. COSENTYX [Suspect]
     Active Substance: SECUKINUMAB
     Route: 058
  199. COSENTYX [Suspect]
     Active Substance: SECUKINUMAB
     Route: 058
  200. COSENTYX [Suspect]
     Active Substance: SECUKINUMAB
     Indication: Psoriatic arthropathy
     Route: 058
  201. COSENTYX [Suspect]
     Active Substance: SECUKINUMAB
     Indication: Psoriasis
     Route: 065
  202. COSENTYX [Suspect]
     Active Substance: SECUKINUMAB
     Indication: Hypertension
     Dosage: 300 MILLIGRAM, 1 EVERY 1 WEEK
     Route: 058
  203. COSENTYX [Suspect]
     Active Substance: SECUKINUMAB
     Dosage: 300 MILLIGRAM, 1 EVERY 1 WEEK
     Route: 065
  204. COSENTYX [Suspect]
     Active Substance: SECUKINUMAB
     Dosage: 30 MILLIGRAM, 1 EVERY 1 WEEK
     Route: 065
  205. COSENTYX [Suspect]
     Active Substance: SECUKINUMAB
     Route: 058
  206. COSENTYX [Suspect]
     Active Substance: SECUKINUMAB
     Dosage: 30 MILLIGRAM, 1 EVERY 1 WEEK
     Route: 065
  207. COSENTYX [Suspect]
     Active Substance: SECUKINUMAB
     Route: 058
  208. COSENTYX [Suspect]
     Active Substance: SECUKINUMAB
     Dosage: 30 MILLIGRAM, 1 EVERY 1 WEEK
     Route: 065
  209. COSENTYX [Suspect]
     Active Substance: SECUKINUMAB
     Dosage: 30 MILLIGRAM, 1 EVERY 1 MONTHS
     Route: 065
  210. COSENTYX [Suspect]
     Active Substance: SECUKINUMAB
     Route: 058
  211. COSENTYX [Suspect]
     Active Substance: SECUKINUMAB
     Dosage: 30 MILLIGRAM, 1 EVERY 1 WEEK
     Route: 065
  212. COSENTYX [Suspect]
     Active Substance: SECUKINUMAB
     Indication: Psoriatic arthropathy
     Route: 058
  213. COSENTYX [Suspect]
     Active Substance: SECUKINUMAB
     Indication: Psoriasis
     Route: 058
  214. COSENTYX [Suspect]
     Active Substance: SECUKINUMAB
     Indication: Hypertension
     Route: 058
  215. COSENTYX [Suspect]
     Active Substance: SECUKINUMAB
     Route: 065
  216. COSENTYX [Suspect]
     Active Substance: SECUKINUMAB
     Route: 065
  217. GLICLAZIDE [Suspect]
     Active Substance: GLICLAZIDE
     Indication: Diabetes mellitus
     Route: 065
  218. GLICLAZIDE [Suspect]
     Active Substance: GLICLAZIDE
     Indication: Blood pressure measurement
     Route: 065
  219. GLICLAZIDE [Suspect]
     Active Substance: GLICLAZIDE
     Indication: Blood pressure abnormal
     Route: 065
  220. GLICLAZIDE [Suspect]
     Active Substance: GLICLAZIDE
     Route: 065
  221. GLICLAZIDE [Suspect]
     Active Substance: GLICLAZIDE
     Route: 048
  222. GLICLAZIDE [Suspect]
     Active Substance: GLICLAZIDE
     Route: 048
  223. GLICLAZIDE [Suspect]
     Active Substance: GLICLAZIDE
     Route: 048
  224. GLICLAZIDE [Suspect]
     Active Substance: GLICLAZIDE
     Route: 048
  225. GLICLAZIDE [Suspect]
     Active Substance: GLICLAZIDE
     Route: 048
  226. GLICLAZIDE [Suspect]
     Active Substance: GLICLAZIDE
     Route: 048
  227. GLICLAZIDE [Suspect]
     Active Substance: GLICLAZIDE
     Route: 048
  228. GLICLAZIDE [Suspect]
     Active Substance: GLICLAZIDE
     Route: 048
  229. GLICLAZIDE [Suspect]
     Active Substance: GLICLAZIDE
     Route: 065
  230. GLICLAZIDE [Suspect]
     Active Substance: GLICLAZIDE
     Route: 065
  231. GLICLAZIDE [Suspect]
     Active Substance: GLICLAZIDE
     Route: 065
  232. GLICLAZIDE [Suspect]
     Active Substance: GLICLAZIDE
     Route: 065
  233. GLICLAZIDE [Suspect]
     Active Substance: GLICLAZIDE
     Route: 065
  234. GLICLAZIDE [Suspect]
     Active Substance: GLICLAZIDE
     Route: 065
  235. GLICLAZIDE [Suspect]
     Active Substance: GLICLAZIDE
     Route: 065
  236. GLICLAZIDE [Suspect]
     Active Substance: GLICLAZIDE
     Route: 065
  237. GLICLAZIDE [Suspect]
     Active Substance: GLICLAZIDE
     Route: 065
  238. GLICLAZIDE [Suspect]
     Active Substance: GLICLAZIDE
     Indication: Diabetes mellitus
     Route: 065
  239. GLICLAZIDE [Suspect]
     Active Substance: GLICLAZIDE
     Indication: Blood pressure measurement
     Route: 065
  240. GLICLAZIDE [Suspect]
     Active Substance: GLICLAZIDE
     Route: 065
  241. GLICLAZIDE [Suspect]
     Active Substance: GLICLAZIDE
     Route: 065
  242. GLICLAZIDE [Suspect]
     Active Substance: GLICLAZIDE
     Route: 048
  243. GLICLAZIDE [Suspect]
     Active Substance: GLICLAZIDE
     Route: 048
  244. GLICLAZIDE [Suspect]
     Active Substance: GLICLAZIDE
     Route: 065
  245. GLICLAZIDE [Suspect]
     Active Substance: GLICLAZIDE
  246. GLICLAZIDE [Suspect]
     Active Substance: GLICLAZIDE
  247. GLICLAZIDE [Suspect]
     Active Substance: GLICLAZIDE
  248. DIMENHYDRINATE [Suspect]
     Active Substance: DIMENHYDRINATE
     Indication: Premedication
     Route: 065
  249. DIMENHYDRINATE [Suspect]
     Active Substance: DIMENHYDRINATE
     Route: 065
  250. DIMENHYDRINATE [Suspect]
     Active Substance: DIMENHYDRINATE
     Indication: Premedication
     Route: 065
  251. DIPHENHYDRAMINE [Suspect]
     Active Substance: DIPHENHYDRAMINE
     Indication: Premedication
     Route: 048
  252. DIPHENHYDRAMINE HYDROCHLORIDE [Suspect]
     Active Substance: DIPHENHYDRAMINE HYDROCHLORIDE
     Indication: Premedication
     Route: 048
  253. DIPHENHYDRAMINE HYDROCHLORIDE [Suspect]
     Active Substance: DIPHENHYDRAMINE HYDROCHLORIDE
     Route: 065
  254. DIPHENHYDRAMINE HYDROCHLORIDE [Suspect]
     Active Substance: DIPHENHYDRAMINE HYDROCHLORIDE
     Route: 048
  255. DIPHENHYDRAMINE HYDROCHLORIDE [Suspect]
     Active Substance: DIPHENHYDRAMINE HYDROCHLORIDE
     Route: 048
  256. DIPHENHYDRAMINE HYDROCHLORIDE [Suspect]
     Active Substance: DIPHENHYDRAMINE HYDROCHLORIDE
     Indication: Premedication
     Route: 048
  257. DIPHENHYDRAMINE HYDROCHLORIDE [Suspect]
     Active Substance: DIPHENHYDRAMINE HYDROCHLORIDE
     Route: 048
  258. DIPHENHYDRAMINE HYDROCHLORIDE [Suspect]
     Active Substance: DIPHENHYDRAMINE HYDROCHLORIDE
     Indication: Premedication
     Route: 048
  259. DIPHENHYDRAMINE HYDROCHLORIDE [Suspect]
     Active Substance: DIPHENHYDRAMINE HYDROCHLORIDE
     Route: 048
  260. LEVOTHYROXINE [Suspect]
     Active Substance: LEVOTHYROXINE
     Indication: Product used for unknown indication
     Route: 048
  261. ERGOCALCIFEROL [Suspect]
     Active Substance: ERGOCALCIFEROL
     Indication: Product used for unknown indication
     Route: 065
  262. ERGOCALCIFEROL [Suspect]
     Active Substance: ERGOCALCIFEROL
  263. ERGOCALCIFEROL [Suspect]
     Active Substance: ERGOCALCIFEROL
     Indication: Product used for unknown indication
     Route: 065
  264. ERGOCALCIFEROL [Suspect]
     Active Substance: ERGOCALCIFEROL
     Route: 065
  265. ESOMEPRAZOLE [Suspect]
     Active Substance: ESOMEPRAZOLE
     Indication: Product used for unknown indication
     Route: 065
  266. ESOMEPRAZOLE [Suspect]
     Active Substance: ESOMEPRAZOLE
     Route: 048
  267. ESOMEPRAZOLE [Suspect]
     Active Substance: ESOMEPRAZOLE
     Route: 042
  268. ESOMEPRAZOLE [Suspect]
     Active Substance: ESOMEPRAZOLE
     Route: 048
  269. ESOMEPRAZOLE [Suspect]
     Active Substance: ESOMEPRAZOLE
     Indication: Product used for unknown indication
     Route: 065
  270. ESOMEPRAZOLE [Suspect]
     Active Substance: ESOMEPRAZOLE
     Route: 042
  271. ESOMEPRAZOLE [Suspect]
     Active Substance: ESOMEPRAZOLE
     Route: 048
  272. ESOMEPRAZOLE [Suspect]
     Active Substance: ESOMEPRAZOLE
     Route: 048
  273. ESOMEPRAZOLE [Suspect]
     Active Substance: ESOMEPRAZOLE
  274. ESOMEPRAZOLE [Suspect]
     Active Substance: ESOMEPRAZOLE
  275. ESOMEPRAZOLE MAGNESIUM [Suspect]
     Active Substance: ESOMEPRAZOLE MAGNESIUM
     Indication: Product used for unknown indication
     Route: 048
  276. ESOMEPRAZOLE MAGNESIUM [Suspect]
     Active Substance: ESOMEPRAZOLE MAGNESIUM
     Route: 048
  277. ESOMEPRAZOLE MAGNESIUM [Suspect]
     Active Substance: ESOMEPRAZOLE MAGNESIUM
     Route: 048
  278. ESOMEPRAZOLE MAGNESIUM [Suspect]
     Active Substance: ESOMEPRAZOLE MAGNESIUM
     Route: 048
  279. ESOMEPRAZOLE MAGNESIUM [Suspect]
     Active Substance: ESOMEPRAZOLE MAGNESIUM
     Route: 048
  280. ESOMEPRAZOLE MAGNESIUM [Suspect]
     Active Substance: ESOMEPRAZOLE MAGNESIUM
     Route: 065
  281. ESOMEPRAZOLE MAGNESIUM [Suspect]
     Active Substance: ESOMEPRAZOLE MAGNESIUM
     Route: 065
  282. ESOMEPRAZOLE MAGNESIUM [Suspect]
     Active Substance: ESOMEPRAZOLE MAGNESIUM
     Route: 042
  283. ESOMEPRAZOLE MAGNESIUM [Suspect]
     Active Substance: ESOMEPRAZOLE MAGNESIUM
     Route: 042
  284. ESOMEPRAZOLE MAGNESIUM [Suspect]
     Active Substance: ESOMEPRAZOLE MAGNESIUM
     Route: 048
  285. ESOMEPRAZOLE MAGNESIUM [Suspect]
     Active Substance: ESOMEPRAZOLE MAGNESIUM
  286. ESOMEPRAZOLE MAGNESIUM [Suspect]
     Active Substance: ESOMEPRAZOLE MAGNESIUM
     Route: 042
  287. ESOMEPRAZOLE MAGNESIUM [Suspect]
     Active Substance: ESOMEPRAZOLE MAGNESIUM
     Route: 042
  288. ESOMEPRAZOLE MAGNESIUM [Suspect]
     Active Substance: ESOMEPRAZOLE MAGNESIUM
     Indication: Product used for unknown indication
     Route: 048
  289. ESOMEPRAZOLE MAGNESIUM [Suspect]
     Active Substance: ESOMEPRAZOLE MAGNESIUM
     Route: 065
  290. ESOMEPRAZOLE MAGNESIUM [Suspect]
     Active Substance: ESOMEPRAZOLE MAGNESIUM
     Indication: Product used for unknown indication
     Route: 065
  291. ESOMEPRAZOLE MAGNESIUM [Suspect]
     Active Substance: ESOMEPRAZOLE MAGNESIUM
     Route: 048
  292. ESOMEPRAZOLE MAGNESIUM [Suspect]
     Active Substance: ESOMEPRAZOLE MAGNESIUM
     Route: 042
  293. ESOMEPRAZOLE MAGNESIUM [Suspect]
     Active Substance: ESOMEPRAZOLE MAGNESIUM
     Route: 048
  294. ESOMEPRAZOLE SODIUM [Suspect]
     Active Substance: ESOMEPRAZOLE SODIUM
     Indication: Product used for unknown indication
     Route: 042
  295. ESOMEPRAZOLE SODIUM [Suspect]
     Active Substance: ESOMEPRAZOLE SODIUM
     Route: 065
  296. ESOMEPRAZOLE SODIUM [Suspect]
     Active Substance: ESOMEPRAZOLE SODIUM
     Route: 042
  297. GLICLAZIDE [Suspect]
     Active Substance: GLICLAZIDE
     Indication: Diabetes mellitus
     Route: 065
  298. GLICLAZIDE [Suspect]
     Active Substance: GLICLAZIDE
     Indication: Blood pressure measurement
     Route: 065
  299. GLICLAZIDE [Suspect]
     Active Substance: GLICLAZIDE
     Route: 065
  300. GLICLAZIDE [Suspect]
     Active Substance: GLICLAZIDE
     Route: 065
  301. GLICLAZIDE [Suspect]
     Active Substance: GLICLAZIDE
     Route: 065
  302. GLICLAZIDE [Suspect]
     Active Substance: GLICLAZIDE
     Route: 065
  303. GLICLAZIDE [Suspect]
     Active Substance: GLICLAZIDE
     Route: 065
  304. GLICLAZIDE [Suspect]
     Active Substance: GLICLAZIDE
     Route: 065
  305. GLICLAZIDE [Suspect]
     Active Substance: GLICLAZIDE
     Route: 065
  306. GLICLAZIDE [Suspect]
     Active Substance: GLICLAZIDE
     Indication: Diabetes mellitus
     Route: 048
  307. GLICLAZIDE [Suspect]
     Active Substance: GLICLAZIDE
     Indication: Blood pressure measurement
     Route: 065
  308. GLICLAZIDE [Suspect]
     Active Substance: GLICLAZIDE
     Indication: Blood pressure abnormal
     Route: 065
  309. GLICLAZIDE [Suspect]
     Active Substance: GLICLAZIDE
     Route: 065
  310. GLICLAZIDE [Suspect]
     Active Substance: GLICLAZIDE
  311. GLICLAZIDE [Suspect]
     Active Substance: GLICLAZIDE
  312. GLICLAZIDE [Suspect]
     Active Substance: GLICLAZIDE
     Route: 065
  313. GLICLAZIDE [Suspect]
     Active Substance: GLICLAZIDE
     Route: 065
  314. GLICLAZIDE [Suspect]
     Active Substance: GLICLAZIDE
     Route: 065
  315. GLICLAZIDE [Suspect]
     Active Substance: GLICLAZIDE
     Route: 065
  316. GLICLAZIDE [Suspect]
     Active Substance: GLICLAZIDE
     Route: 065
  317. GLICLAZIDE [Suspect]
     Active Substance: GLICLAZIDE
     Route: 065
  318. GLUCOPHAGE [Suspect]
     Active Substance: METFORMIN HYDROCHLORIDE
     Indication: Product used for unknown indication
     Route: 048
  319. GRAVOL [Suspect]
     Active Substance: DIMENHYDRINATE
     Indication: Premedication
     Route: 065
  320. GRAVOL [Suspect]
     Active Substance: DIMENHYDRINATE
     Route: 065
  321. GRAVOL [Suspect]
     Active Substance: DIMENHYDRINATE
     Route: 065
  322. GRAVOL [Suspect]
     Active Substance: DIMENHYDRINATE
     Route: 065
  323. GRAVOL [Suspect]
     Active Substance: DIMENHYDRINATE
     Indication: Premedication
     Route: 065
  324. GRAVOL [Suspect]
     Active Substance: DIMENHYDRINATE
     Route: 065
  325. GRAVOL [Suspect]
     Active Substance: DIMENHYDRINATE
     Route: 065
  326. GRAVOL [Suspect]
     Active Substance: DIMENHYDRINATE
  327. GRAVOL [Suspect]
     Active Substance: DIMENHYDRINATE
  328. IRBESARTAN [Suspect]
     Active Substance: IRBESARTAN
     Indication: Hypertension
     Route: 065
  329. IRBESARTAN [Suspect]
     Active Substance: IRBESARTAN
     Route: 048
  330. IRBESARTAN [Suspect]
     Active Substance: IRBESARTAN
     Route: 048
  331. IRBESARTAN [Suspect]
     Active Substance: IRBESARTAN
     Route: 048
  332. IRBESARTAN [Suspect]
     Active Substance: IRBESARTAN
     Route: 048
  333. IRBESARTAN [Suspect]
     Active Substance: IRBESARTAN
     Route: 065
  334. IRBESARTAN [Suspect]
     Active Substance: IRBESARTAN
     Route: 048
  335. IRBESARTAN [Suspect]
     Active Substance: IRBESARTAN
     Route: 048
  336. IRBESARTAN [Suspect]
     Active Substance: IRBESARTAN
     Route: 065
  337. IRBESARTAN [Suspect]
     Active Substance: IRBESARTAN
  338. JANUVIA [Suspect]
     Active Substance: SITAGLIPTIN PHOSPHATE
     Indication: Product used for unknown indication
     Route: 065
  339. JANUVIA [Suspect]
     Active Substance: SITAGLIPTIN PHOSPHATE
     Route: 065
  340. JANUVIA [Suspect]
     Active Substance: SITAGLIPTIN PHOSPHATE
     Route: 048
  341. JANUVIA [Suspect]
     Active Substance: SITAGLIPTIN PHOSPHATE
  342. JANUVIA [Suspect]
     Active Substance: SITAGLIPTIN PHOSPHATE
     Route: 065
  343. LEVOTHYROXINE SODIUM [Suspect]
     Active Substance: LEVOTHYROXINE SODIUM
     Indication: Product used for unknown indication
     Route: 065
  344. LEVOTHYROXINE SODIUM [Suspect]
     Active Substance: LEVOTHYROXINE SODIUM
     Route: 048
  345. LEVOTHYROXINE SODIUM [Suspect]
     Active Substance: LEVOTHYROXINE SODIUM
     Indication: Product used for unknown indication
     Route: 065
  346. LEVOTHYROXINE SODIUM [Suspect]
     Active Substance: LEVOTHYROXINE SODIUM
     Route: 048
  347. LEVOTHYROXINE SODIUM [Suspect]
     Active Substance: LEVOTHYROXINE SODIUM
  348. LEVOTHYROXINE SODIUM [Suspect]
     Active Substance: LEVOTHYROXINE SODIUM
  349. LEVOTHYROXINE SODIUM [Suspect]
     Active Substance: LEVOTHYROXINE SODIUM
     Route: 048
  350. LIPITOR [Suspect]
     Active Substance: ATORVASTATIN CALCIUM
     Indication: Product used for unknown indication
     Route: 065
  351. LIPITOR [Suspect]
     Active Substance: ATORVASTATIN CALCIUM
     Route: 065
  352. LIPITOR [Suspect]
     Active Substance: ATORVASTATIN CALCIUM
     Route: 048
  353. LIPITOR [Suspect]
     Active Substance: ATORVASTATIN CALCIUM
  354. LIPITOR [Suspect]
     Active Substance: ATORVASTATIN CALCIUM
  355. LISINOPRIL [Suspect]
     Active Substance: LISINOPRIL
     Indication: Hypertension
     Route: 048
  356. LISINOPRIL [Suspect]
     Active Substance: LISINOPRIL
     Route: 048
  357. LISINOPRIL [Suspect]
     Active Substance: LISINOPRIL
     Route: 048
  358. LISINOPRIL [Suspect]
     Active Substance: LISINOPRIL
     Route: 065
  359. LISINOPRIL [Suspect]
     Active Substance: LISINOPRIL
     Route: 048
  360. LISINOPRIL [Suspect]
     Active Substance: LISINOPRIL
     Route: 048
  361. LISINOPRIL [Suspect]
     Active Substance: LISINOPRIL
     Route: 048
  362. LISINOPRIL [Suspect]
     Active Substance: LISINOPRIL
     Indication: Hypertension
     Route: 048
  363. LISINOPRIL [Suspect]
     Active Substance: LISINOPRIL
     Route: 048
  364. METFORMIN [Suspect]
     Active Substance: METFORMIN HYDROCHLORIDE
     Indication: Product used for unknown indication
     Route: 048
  365. METFORMIN [Suspect]
     Active Substance: METFORMIN HYDROCHLORIDE
     Route: 048
  366. METFORMIN [Suspect]
     Active Substance: METFORMIN HYDROCHLORIDE
     Route: 048
  367. METFORMIN [Suspect]
     Active Substance: METFORMIN HYDROCHLORIDE
     Route: 048
  368. METFORMIN [Suspect]
     Active Substance: METFORMIN HYDROCHLORIDE
     Route: 030
  369. METFORMIN [Suspect]
     Active Substance: METFORMIN HYDROCHLORIDE
     Route: 065
  370. METFORMIN [Suspect]
     Active Substance: METFORMIN HYDROCHLORIDE
     Route: 048
  371. METFORMIN [Suspect]
     Active Substance: METFORMIN HYDROCHLORIDE
     Route: 048
  372. METFORMIN [Suspect]
     Active Substance: METFORMIN HYDROCHLORIDE
  373. METFORMIN [Suspect]
     Active Substance: METFORMIN HYDROCHLORIDE
     Indication: Product used for unknown indication
     Route: 048
  374. METFORMIN [Suspect]
     Active Substance: METFORMIN HYDROCHLORIDE
     Route: 048
  375. METFORMIN [Suspect]
     Active Substance: METFORMIN HYDROCHLORIDE
     Route: 030
  376. METFORMIN [Suspect]
     Active Substance: METFORMIN HYDROCHLORIDE
  377. METFORMIN [Suspect]
     Active Substance: METFORMIN HYDROCHLORIDE
  378. METFORMIN [Suspect]
     Active Substance: METFORMIN HYDROCHLORIDE
  379. METFORMIN [Suspect]
     Active Substance: METFORMIN HYDROCHLORIDE
     Route: 048
  380. METFORMIN [Suspect]
     Active Substance: METFORMIN HYDROCHLORIDE
     Route: 048
  381. METFORMIN [Suspect]
     Active Substance: METFORMIN HYDROCHLORIDE
     Route: 048
  382. METFORMIN [Suspect]
     Active Substance: METFORMIN HYDROCHLORIDE
     Route: 048
  383. METFORMIN [Suspect]
     Active Substance: METFORMIN HYDROCHLORIDE
  384. METFORMIN [Suspect]
     Active Substance: METFORMIN HYDROCHLORIDE
  385. METFORMIN [Suspect]
     Active Substance: METFORMIN HYDROCHLORIDE
     Route: 065
  386. METFORMIN HYDROCHLORIDE [Suspect]
     Active Substance: METFORMIN HYDROCHLORIDE
     Indication: Product used for unknown indication
     Route: 065
  387. METFORMIN HYDROCHLORIDE [Suspect]
     Active Substance: METFORMIN HYDROCHLORIDE
     Route: 048
  388. METFORMIN HYDROCHLORIDE [Suspect]
     Active Substance: METFORMIN HYDROCHLORIDE
     Route: 048
  389. METFORMIN HYDROCHLORIDE [Suspect]
     Active Substance: METFORMIN HYDROCHLORIDE
     Route: 048
  390. METHOTREXATE [Suspect]
     Active Substance: METHOTREXATE
     Indication: Product used for unknown indication
     Route: 065
  391. METHOTREXATE [Suspect]
     Active Substance: METHOTREXATE
     Route: 064
  392. METHOTREXATE [Suspect]
     Active Substance: METHOTREXATE
     Route: 037
  393. METHOTREXATE [Suspect]
     Active Substance: METHOTREXATE
  394. METHOTREXATE [Suspect]
     Active Substance: METHOTREXATE
  395. METHOTREXATE [Suspect]
     Active Substance: METHOTREXATE
     Indication: Product used for unknown indication
  396. METHYLPREDNISOLONE [Suspect]
     Active Substance: METHYLPREDNISOLONE
     Indication: Product used for unknown indication
     Route: 065
  397. METHYLPREDNISOLONE [Suspect]
     Active Substance: METHYLPREDNISOLONE
  398. METHYLPREDNISOLONE SODIUM SUCCINATE [Suspect]
     Active Substance: METHYLPREDNISOLONE SODIUM SUCCINATE
     Indication: Premedication
     Route: 042
  399. METHYLPREDNISOLONE SODIUM SUCCINATE [Suspect]
     Active Substance: METHYLPREDNISOLONE SODIUM SUCCINATE
     Route: 042
  400. METHYLPREDNISOLONE SODIUM SUCCINATE [Suspect]
     Active Substance: METHYLPREDNISOLONE SODIUM SUCCINATE
     Route: 065
  401. METHYLPREDNISOLONE SODIUM SUCCINATE [Suspect]
     Active Substance: METHYLPREDNISOLONE SODIUM SUCCINATE
     Indication: Premedication
     Route: 042
  402. METHYLPREDNISOLONE SODIUM SUCCINATE [Suspect]
     Active Substance: METHYLPREDNISOLONE SODIUM SUCCINATE
     Route: 065
  403. MORPHINE [Suspect]
     Active Substance: MORPHINE
     Indication: Product used for unknown indication
     Route: 030
  404. MORPHINE [Suspect]
     Active Substance: MORPHINE
     Route: 030
  405. MORPHINE [Suspect]
     Active Substance: MORPHINE
     Indication: Product used for unknown indication
     Route: 030
  406. MORPHINE SULFATE [Suspect]
     Active Substance: MORPHINE SULFATE
     Indication: Product used for unknown indication
     Route: 065
  407. MORPHINE SULFATE [Suspect]
     Active Substance: MORPHINE SULFATE
     Route: 030
  408. MORPHINE SULFATE [Suspect]
     Active Substance: MORPHINE SULFATE
  409. MORPHINE SULFATE [Suspect]
     Active Substance: MORPHINE SULFATE
     Indication: Product used for unknown indication
     Route: 030
  410. MORPHINE SULFATE [Suspect]
     Active Substance: MORPHINE SULFATE
     Route: 065
  411. MORPHINE SULFATE [Suspect]
     Active Substance: MORPHINE SULFATE
     Route: 065
  412. MORPHINE SULFATE [Suspect]
     Active Substance: MORPHINE SULFATE
     Route: 065
  413. MORPHINE SULFATE [Suspect]
     Active Substance: MORPHINE SULFATE
     Route: 065
  414. NAPROXEN [Suspect]
     Active Substance: NAPROXEN
     Indication: Product used for unknown indication
     Route: 065
  415. NAPROXEN [Suspect]
     Active Substance: NAPROXEN
     Route: 065
  416. NAPROXEN [Suspect]
     Active Substance: NAPROXEN
     Route: 065
  417. NAPROXEN [Suspect]
     Active Substance: NAPROXEN
     Route: 065
  418. NAPROXEN [Suspect]
     Active Substance: NAPROXEN
     Indication: Product used for unknown indication
  419. NEXIUM [Suspect]
     Active Substance: ESOMEPRAZOLE MAGNESIUM
     Indication: Product used for unknown indication
     Route: 065
  420. NEXIUM [Suspect]
     Active Substance: ESOMEPRAZOLE MAGNESIUM
     Indication: Product used for unknown indication
     Route: 042
  421. NEXIUM [Suspect]
     Active Substance: ESOMEPRAZOLE MAGNESIUM
  422. NEXIUM [Suspect]
     Active Substance: ESOMEPRAZOLE MAGNESIUM
     Route: 048
  423. NEXIUM [Suspect]
     Active Substance: ESOMEPRAZOLE MAGNESIUM
     Route: 048
  424. NEXIUM I.V. [Suspect]
     Active Substance: ESOMEPRAZOLE SODIUM
     Indication: Product used for unknown indication
     Route: 042
  425. NEXIUM 24HR [Suspect]
     Active Substance: ESOMEPRAZOLE MAGNESIUM
     Indication: Product used for unknown indication
     Route: 065
  426. NEXIUM 24HR [Suspect]
     Active Substance: ESOMEPRAZOLE MAGNESIUM
     Route: 048
  427. NEXIUM 24HR [Suspect]
     Active Substance: ESOMEPRAZOLE MAGNESIUM
     Indication: Product used for unknown indication
     Route: 048
  428. NEXIUM 24HR [Suspect]
     Active Substance: ESOMEPRAZOLE MAGNESIUM
     Indication: Product used for unknown indication
     Route: 065
  429. NEXIUM 24HR [Suspect]
     Active Substance: ESOMEPRAZOLE MAGNESIUM
     Route: 048
  430. ONDANSETRON [Suspect]
     Active Substance: ONDANSETRON
     Indication: Product used for unknown indication
     Route: 065
  431. ONDANSETRON [Suspect]
     Active Substance: ONDANSETRON
     Route: 065
  432. ONDANSETRON [Suspect]
     Active Substance: ONDANSETRON
     Route: 030
  433. ONDANSETRON [Suspect]
     Active Substance: ONDANSETRON
     Indication: Product used for unknown indication
     Route: 065
  434. ONDANSETRON [Suspect]
     Active Substance: ONDANSETRON
  435. ONDANSETRON HYDROCHLORIDE [Suspect]
     Active Substance: ONDANSETRON HYDROCHLORIDE
     Indication: Product used for unknown indication
     Route: 065
  436. ONDANSETRON HYDROCHLORIDE [Suspect]
     Active Substance: ONDANSETRON HYDROCHLORIDE
     Route: 065
  437. ONDANSETRON HYDROCHLORIDE [Suspect]
     Active Substance: ONDANSETRON HYDROCHLORIDE
     Route: 065
  438. PREDNISONE [Suspect]
     Active Substance: PREDNISONE
     Indication: Product used for unknown indication
     Route: 065
  439. PREDNISONE [Suspect]
     Active Substance: PREDNISONE
  440. PREDNISONE [Suspect]
     Active Substance: PREDNISONE
     Route: 065
  441. PREDNISONE [Suspect]
     Active Substance: PREDNISONE
     Route: 065
  442. PREDNISONE [Suspect]
     Active Substance: PREDNISONE
     Route: 065
  443. PREDNISONE [Suspect]
     Active Substance: PREDNISONE
     Indication: Product used for unknown indication
     Route: 065
  444. PREDNISONE [Suspect]
     Active Substance: PREDNISONE
     Route: 065
  445. PREDNISONE [Suspect]
     Active Substance: PREDNISONE
     Route: 065
  446. PROCHLORPERAZINE [Suspect]
     Active Substance: PROCHLORPERAZINE
     Indication: Vomiting
     Route: 065
  447. PROCHLORPERAZINE [Suspect]
     Active Substance: PROCHLORPERAZINE
     Route: 065
  448. PROCHLORPERAZINE [Suspect]
     Active Substance: PROCHLORPERAZINE
     Route: 065
  449. PROCHLORPERAZINE [Suspect]
     Active Substance: PROCHLORPERAZINE
  450. PROCHLORPERAZINE [Suspect]
     Active Substance: PROCHLORPERAZINE
     Indication: Vomiting
     Route: 065
  451. PROCHLORPERAZINE [Suspect]
     Active Substance: PROCHLORPERAZINE
     Route: 065
  452. PROCHLORPERAZINE [Suspect]
     Active Substance: PROCHLORPERAZINE
  453. PROCHLORPERAZINE [Suspect]
     Active Substance: PROCHLORPERAZINE
     Route: 065
  454. PROCHLORPERAZINE [Suspect]
     Active Substance: PROCHLORPERAZINE
     Route: 065
  455. PROCHLORPERAZINE MALEATE [Suspect]
     Active Substance: PROCHLORPERAZINE MALEATE
     Indication: Vomiting
     Route: 065
  456. PROCHLORPERAZINE MALEATE [Suspect]
     Active Substance: PROCHLORPERAZINE MALEATE
     Indication: Vomiting
  457. RAMIPRIL [Suspect]
     Active Substance: RAMIPRIL
     Indication: Product used for unknown indication
     Route: 048
  458. RAMIPRIL [Suspect]
     Active Substance: RAMIPRIL
     Route: 065
  459. RAMIPRIL [Suspect]
     Active Substance: RAMIPRIL
     Route: 048
  460. RAMIPRIL [Suspect]
     Active Substance: RAMIPRIL
     Route: 048
  461. RAMIPRIL [Suspect]
     Active Substance: RAMIPRIL
     Route: 048
  462. RITUXAN [Suspect]
     Active Substance: RITUXIMAB
     Indication: Sjogren^s syndrome
     Route: 042
  463. RITUXAN [Suspect]
     Active Substance: RITUXIMAB
     Indication: Rheumatoid arthritis
     Route: 042
  464. IRBESARTAN [Suspect]
     Active Substance: IRBESARTAN
     Indication: Hypertension
     Route: 048
  465. IRBESARTAN [Suspect]
     Active Substance: IRBESARTAN
     Route: 048
  466. IRBESARTAN [Suspect]
     Active Substance: IRBESARTAN
     Route: 048
  467. IRBESARTAN [Suspect]
     Active Substance: IRBESARTAN
     Route: 048
  468. IRBESARTAN [Suspect]
     Active Substance: IRBESARTAN
     Route: 065
  469. IRBESARTAN [Suspect]
     Active Substance: IRBESARTAN
     Route: 065
  470. IRBESARTAN [Suspect]
     Active Substance: IRBESARTAN
     Route: 065
  471. IRBESARTAN [Suspect]
     Active Substance: IRBESARTAN
     Route: 065
  472. IRBESARTAN [Suspect]
     Active Substance: IRBESARTAN
     Route: 065
  473. IRBESARTAN [Suspect]
     Active Substance: IRBESARTAN
     Route: 065
  474. IRBESARTAN [Suspect]
     Active Substance: IRBESARTAN
     Route: 065
  475. IRBESARTAN [Suspect]
     Active Substance: IRBESARTAN
     Route: 065
  476. IRBESARTAN [Suspect]
     Active Substance: IRBESARTAN
     Route: 065
  477. IRBESARTAN [Suspect]
     Active Substance: IRBESARTAN
     Route: 065
  478. IRBESARTAN [Suspect]
     Active Substance: IRBESARTAN
     Route: 065
  479. IRBESARTAN [Suspect]
     Active Substance: IRBESARTAN
     Route: 065
  480. IRBESARTAN [Suspect]
     Active Substance: IRBESARTAN
     Route: 065
  481. IRBESARTAN [Suspect]
     Active Substance: IRBESARTAN
     Route: 065
  482. IRBESARTAN [Suspect]
     Active Substance: IRBESARTAN
     Route: 065
  483. IRBESARTAN [Suspect]
     Active Substance: IRBESARTAN
     Route: 065
  484. IRBESARTAN [Suspect]
     Active Substance: IRBESARTAN
     Route: 065
  485. IRBESARTAN [Suspect]
     Active Substance: IRBESARTAN
     Route: 065
  486. IRBESARTAN [Suspect]
     Active Substance: IRBESARTAN
     Route: 048
  487. IRBESARTAN [Suspect]
     Active Substance: IRBESARTAN
     Route: 065
  488. IRBESARTAN [Suspect]
     Active Substance: IRBESARTAN
     Route: 048
  489. IRBESARTAN [Suspect]
     Active Substance: IRBESARTAN
  490. IRBESARTAN [Suspect]
     Active Substance: IRBESARTAN
  491. IRBESARTAN [Suspect]
     Active Substance: IRBESARTAN
  492. IRBESARTAN [Suspect]
     Active Substance: IRBESARTAN
  493. IRBESARTAN [Suspect]
     Active Substance: IRBESARTAN
     Route: 048
  494. IRBESARTAN [Suspect]
     Active Substance: IRBESARTAN
  495. SITAGLIPTIN PHOSPHATE [Suspect]
     Active Substance: SITAGLIPTIN PHOSPHATE
     Indication: Product used for unknown indication
     Route: 065
  496. SITAGLIPTIN PHOSPHATE [Suspect]
     Active Substance: SITAGLIPTIN PHOSPHATE
     Route: 065
  497. SITAGLIPTIN PHOSPHATE [Suspect]
     Active Substance: SITAGLIPTIN PHOSPHATE
     Route: 048
  498. PROCHLORPERAZINE [Suspect]
     Active Substance: PROCHLORPERAZINE
     Indication: Vomiting
     Route: 065
  499. PROCHLORPERAZINE MALEATE [Suspect]
     Active Substance: PROCHLORPERAZINE MALEATE
     Indication: Vomiting
     Route: 065
  500. PROCHLORPERAZINE [Suspect]
     Active Substance: PROCHLORPERAZINE
     Indication: Vomiting
     Route: 065
  501. SYNTHROID [Suspect]
     Active Substance: LEVOTHYROXINE SODIUM
     Indication: Product used for unknown indication
     Route: 065
  502. SYNTHROID [Suspect]
     Active Substance: LEVOTHYROXINE SODIUM
     Route: 065
  503. SYNTHROID [Suspect]
     Active Substance: LEVOTHYROXINE SODIUM
     Route: 058
  504. SYNTHROID [Suspect]
     Active Substance: LEVOTHYROXINE SODIUM
  505. SYNTHROID [Suspect]
     Active Substance: LEVOTHYROXINE SODIUM
  506. SYNTHROID [Suspect]
     Active Substance: LEVOTHYROXINE SODIUM
     Indication: Product used for unknown indication
     Route: 065
  507. SYNTHROID [Suspect]
     Active Substance: LEVOTHYROXINE SODIUM
     Route: 065
  508. SYNTHROID [Suspect]
     Active Substance: LEVOTHYROXINE SODIUM
  509. SYNTHROID [Suspect]
     Active Substance: LEVOTHYROXINE SODIUM
     Route: 065
  510. ZESTRIL [Suspect]
     Active Substance: LISINOPRIL
     Indication: Hypertension
     Route: 048
  511. ZESTRIL [Suspect]
     Active Substance: LISINOPRIL
  512. ZESTRIL [Suspect]
     Active Substance: LISINOPRIL
     Route: 065
  513. ZESTRIL [Suspect]
     Active Substance: LISINOPRIL
     Route: 065
  514. ZESTRIL [Suspect]
     Active Substance: LISINOPRIL
     Route: 065
  515. ZESTRIL [Suspect]
     Active Substance: LISINOPRIL
     Route: 065
  516. ZOLPIDEM [Suspect]
     Active Substance: ZOLPIDEM TARTRATE
     Indication: Product used for unknown indication
     Route: 065
  517. ZOLPIDEM [Suspect]
     Active Substance: ZOLPIDEM TARTRATE
     Route: 065
  518. ZOLPIDEM [Suspect]
     Active Substance: ZOLPIDEM TARTRATE
     Route: 065
  519. ZOLPIDEM [Suspect]
     Active Substance: ZOLPIDEM TARTRATE
     Route: 048
  520. ZOLPIDEM [Suspect]
     Active Substance: ZOLPIDEM TARTRATE
     Indication: Product used for unknown indication
     Route: 065
  521. ZOLPIDEM [Suspect]
     Active Substance: ZOLPIDEM TARTRATE
     Route: 065
  522. ZOLPIDEM [Suspect]
     Active Substance: ZOLPIDEM TARTRATE
     Route: 065
  523. ZOLPIDEM [Suspect]
     Active Substance: ZOLPIDEM TARTRATE
  524. ZOLPIDEM [Suspect]
     Active Substance: ZOLPIDEM TARTRATE
  525. ZOLPIDEM [Suspect]
     Active Substance: ZOLPIDEM TARTRATE
  526. ZOLPIDEM [Suspect]
     Active Substance: ZOLPIDEM TARTRATE
  527. ZOLPIDEM [Suspect]
     Active Substance: ZOLPIDEM TARTRATE
  528. ZOFRAN [Suspect]
     Active Substance: ONDANSETRON HYDROCHLORIDE
     Indication: Product used for unknown indication
     Route: 065
  529. ZOFRAN [Suspect]
     Active Substance: ONDANSETRON HYDROCHLORIDE
     Indication: Product used for unknown indication
     Route: 065
  530. ZOFRAN [Suspect]
     Active Substance: ONDANSETRON HYDROCHLORIDE
     Route: 065

REACTIONS (55)
  - Adjustment disorder [Not Recovered/Not Resolved]
  - Affect lability [Not Recovered/Not Resolved]
  - Aphasia [Not Recovered/Not Resolved]
  - Arterial occlusive disease [Not Recovered/Not Resolved]
  - Arthritis [Not Recovered/Not Resolved]
  - Blood pressure increased [Not Recovered/Not Resolved]
  - Confusional state [Not Recovered/Not Resolved]
  - Carotid artery thrombosis [Not Recovered/Not Resolved]
  - Cataract [Not Recovered/Not Resolved]
  - Cerebrovascular accident [Not Recovered/Not Resolved]
  - Chest discomfort [Not Recovered/Not Resolved]
  - Coordination abnormal [Not Recovered/Not Resolved]
  - Dysarthria [Not Recovered/Not Resolved]
  - Dysphagia [Not Recovered/Not Resolved]
  - Eating disorder [Not Recovered/Not Resolved]
  - Gastrointestinal disorder [Not Recovered/Not Resolved]
  - Fall [Not Recovered/Not Resolved]
  - Hemiplegia [Not Recovered/Not Resolved]
  - Influenza like illness [Not Recovered/Not Resolved]
  - Malaise [Not Recovered/Not Resolved]
  - Motor dysfunction [Not Recovered/Not Resolved]
  - Muscle spasticity [Not Recovered/Not Resolved]
  - Muscular weakness [Not Recovered/Not Resolved]
  - Neurologic neglect syndrome [Not Recovered/Not Resolved]
  - Personality disorder [Not Recovered/Not Resolved]
  - Psoriasis [Not Recovered/Not Resolved]
  - Rheumatoid arthritis [Not Recovered/Not Resolved]
  - Respiratory tract congestion [Not Recovered/Not Resolved]
  - Sensory loss [Not Recovered/Not Resolved]
  - Sinus congestion [Not Recovered/Not Resolved]
  - Sinus disorder [Not Recovered/Not Resolved]
  - Skin exfoliation [Not Recovered/Not Resolved]
  - Skin haemorrhage [Not Recovered/Not Resolved]
  - Hemiparesis [Not Recovered/Not Resolved]
  - Rhinorrhoea [Not Recovered/Not Resolved]
  - Angina pectoris [Not Recovered/Not Resolved]
  - Anxiety [Not Recovered/Not Resolved]
  - Asthenia [Not Recovered/Not Resolved]
  - Cough [Not Recovered/Not Resolved]
  - Cystitis [Not Recovered/Not Resolved]
  - Fatigue [Not Recovered/Not Resolved]
  - Gangrene [Not Recovered/Not Resolved]
  - Headache [Not Recovered/Not Resolved]
  - Influenza [Not Recovered/Not Resolved]
  - Nasopharyngitis [Not Recovered/Not Resolved]
  - Nausea [Not Recovered/Not Resolved]
  - Pain [Not Recovered/Not Resolved]
  - Palpitations [Not Recovered/Not Resolved]
  - Pneumonia [Not Recovered/Not Resolved]
  - Pyrexia [Not Recovered/Not Resolved]
  - Sinusitis [Not Recovered/Not Resolved]
  - Sneezing [Not Recovered/Not Resolved]
  - Vomiting [Not Recovered/Not Resolved]
  - Product use issue [Not Recovered/Not Resolved]
  - Intentional product use issue [Unknown]
